FAERS Safety Report 5022940-5 (Version None)
Quarter: 2006Q2

REPORT INFORMATION
  Report Type: 
  Country: None (occurrence: None)
  Receive Date: 20060426
  Receipt Date: 20060124
  Transmission Date: 20061013
  Serious: Yes (Other)
  Sender: FDA-Public Use
  Company Number: 2006011128

PATIENT
  Age: 53 Year
  Sex: Male

DRUGS (3)
  1. LYRICA [Suspect]
     Indication: NEUROPATHY
     Dosage: 50 MG (50 MG, 1 IN 1 D), ORAL
     Route: 048
     Dates: start: 20051101, end: 20051201
  2. CELEBREX [Suspect]
     Indication: BACK PAIN
     Dosage: 400 MG (200 MG, 2 IN 1 D),
     Dates: start: 20051101
  3. SKELAXIN [Suspect]
     Indication: BACK PAIN
     Dosage: 3200 MG (800 MG, 4 IN 1 D),
     Dates: start: 20051101

REACTIONS (2)
  - BLINDNESS [None]
  - PAIN [None]
